FAERS Safety Report 9096859 (Version 4)
Quarter: 2013Q2

REPORT INFORMATION
  Report Type: Report from Study
  Country: US (occurrence: US)
  Receive Date: 20130211
  Receipt Date: 20130603
  Transmission Date: 20140414
  Serious: Yes (Disabling, Other)
  Sender: FDA-Public Use
  Company Number: PHEH2013US003346

PATIENT
  Sex: Female
  Weight: 75.28 kg

DRUGS (1)
  1. GILENYA [Suspect]
     Indication: MULTIPLE SCLEROSIS
     Dosage: 0.5 MG, QD
     Route: 048
     Dates: start: 20121024

REACTIONS (2)
  - Colon cancer metastatic [Unknown]
  - Benign bone neoplasm [Not Recovered/Not Resolved]
